FAERS Safety Report 16531629 (Version 2)
Quarter: 2019Q3

REPORT INFORMATION
  Report Type: Spontaneous
  Country: US (occurrence: US)
  Receive Date: 20190705
  Receipt Date: 20190814
  Transmission Date: 20191004
  Serious: No
  Sender: FDA-Public Use
  Company Number: US-ASTRAZENECA-2019SE86353

PATIENT
  Age: 20821 Day
  Sex: Male

DRUGS (1)
  1. BYDUREON BCISE [Suspect]
     Active Substance: EXENATIDE
     Route: 058

REACTIONS (7)
  - Injection site nodule [Recovering/Resolving]
  - Drug dose omission by device [Unknown]
  - Device leakage [Unknown]
  - Injection site pain [Unknown]
  - Device issue [Unknown]
  - Intentional product misuse [Unknown]
  - Injection site bruising [Unknown]

NARRATIVE: CASE EVENT DATE: 20190606
